FAERS Safety Report 8760646 (Version 1)
Quarter: 2012Q4

REPORT INFORMATION
  Report Type: 
  Country: CA (occurrence: CA)
  Receive Date: 20120830
  Receipt Date: 20120830
  Transmission Date: 20130627
  Serious: Yes (Hospitalization)
  Sender: FDA-Public Use
  Company Number: CA-B.I. PHARMACEUTICALS,INC./RIDGEFIELD-2012-CN-01737CN

PATIENT
  Age: 73 Year
  Sex: Male

DRUGS (3)
  1. PRADAX [Suspect]
     Indication: CEREBROVASCULAR ACCIDENT PROPHYLAXIS
     Dosage: 220 mg
     Route: 048
  2. PRADAX [Suspect]
     Indication: ATRIAL FIBRILLATION
  3. AMIODARONE [Concomitant]
     Dosage: 200 mg
     Route: 048

REACTIONS (1)
  - Hyperglycaemia [Recovered/Resolved]
